FAERS Safety Report 9936927 (Version 1)
Quarter: 2014Q1

REPORT INFORMATION
  Report Type: Spontaneous
  Country: US (occurrence: None)
  Receive Date: 20140115
  Receipt Date: 20140115
  Transmission Date: 20141002
  Serious: No
  Sender: FDA-Public Use
  Company Number: 2013US002636

PATIENT
  Age: 78 Year
  Sex: Male
  Weight: 104 kg

DRUGS (10)
  1. ICLUSIG (PONATINIB) TABLET, 45 MG [Suspect]
     Indication: CHRONIC MYELOID LEUKAEMIA
     Route: 048
     Dates: start: 20130906
  2. DETROL LA (TOLTERODINE I-TARTRATE) [Concomitant]
  3. ULONIC (FEBUXOSTAT) [Concomitant]
  4. LASIX (FUROSEMIDE) [Concomitant]
  5. ALDACTONE (SPIRONOLACTONE) [Concomitant]
  6. PRILOSEC (OMEPRAZOLE) [Concomitant]
  7. KETOROLAC (KETOROLAC) [Concomitant]
  8. LOVENOX (ENOXAPARIN SODIUM) [Concomitant]
  9. CENTRUM SILVER (ASCORBIC, CALCIUM, MINERALS NOS, RETINOL, TOCOPHERYL ACETATE, VITAMIN B NOS, VITAMINS NOS, ZINC) [Concomitant]
  10. OSCAL D (CALCIUM CARBONATE, VITAMIN D NOS) [Concomitant]

REACTIONS (3)
  - Oedema peripheral [None]
  - Rash erythematous [None]
  - Dry skin [None]
